FAERS Safety Report 14899697 (Version 1)
Quarter: 2018Q2

REPORT INFORMATION
  Report Type: Report from Study
  Country: FR (occurrence: FR)
  Receive Date: 20180516
  Receipt Date: 20180516
  Transmission Date: 20180711
  Serious: Yes (Hospitalization, Other)
  Sender: FDA-Public Use
  Company Number: FR-SUN PHARMACEUTICAL INDUSTRIES LTD-2018RR-172910

PATIENT
  Age: 77 Year
  Sex: Male
  Weight: 65 kg

DRUGS (7)
  1. ODOMZO [Suspect]
     Active Substance: SONIDEGIB
     Indication: ACUTE MYELOID LEUKAEMIA
     Dosage: 400 MG,
     Route: 048
     Dates: start: 20170629, end: 20170726
  2. ODOMZO [Suspect]
     Active Substance: SONIDEGIB
     Dosage: 400 MG,
     Route: 048
     Dates: start: 20171003
  3. PERINDOPRIL [Concomitant]
     Active Substance: PERINDOPRIL
     Indication: HYPERTENSION
     Dosage: 4 MG,
     Route: 048
     Dates: start: 2006
  4. VIDAZA [Suspect]
     Active Substance: AZACITIDINE
     Dosage: 90 MG,
     Route: 058
     Dates: start: 20170921, end: 20170925
  5. INDAPAMID [Concomitant]
     Active Substance: INDAPAMIDE
     Indication: HYPERTENSION
     Dosage: 1.25 MG,
     Route: 048
     Dates: start: 2006
  6. VIDAZA [Suspect]
     Active Substance: AZACITIDINE
     Indication: ACUTE MYELOID LEUKAEMIA
     Dosage: 90 MG,
     Route: 058
     Dates: start: 20170629, end: 20170703
  7. ATENOLOL. [Concomitant]
     Active Substance: ATENOLOL
     Indication: HYPERTENSION
     Dosage: 50 MG,
     Route: 048
     Dates: start: 2006

REACTIONS (1)
  - Paronychia [Recovered/Resolved]

NARRATIVE: CASE EVENT DATE: 20171003
